FAERS Safety Report 4813056-9 (Version None)
Quarter: 2005Q4

REPORT INFORMATION
  Report Type: 
  Country: None (occurrence: None)
  Receive Date: 20051028
  Receipt Date: 20051019
  Transmission Date: 20060501
  Serious: Yes (Hospitalization)
  Sender: FDA-Public Use
  Company Number: US-JNJFOC-20050906644

PATIENT
  Sex: Female
  Weight: 104.33 kg

DRUGS (3)
  1. REMICADE [Suspect]
     Route: 042
  2. REMICADE [Suspect]
     Dosage: 8 VIALS
     Route: 042
  3. REMICADE [Suspect]
     Indication: RHEUMATOID ARTHRITIS
     Dosage: ON FOR 2-3 YEARS; WENT FROM EVERY 8 WEEKS TO EVERY 6 WEEKS, AND FROM EIGHT VIALS TO FIVE.
     Route: 042

REACTIONS (4)
  - HERNIA [None]
  - INTESTINAL OBSTRUCTION [None]
  - INTESTINAL OPERATION [None]
  - THROMBOSIS [None]
